FAERS Safety Report 12765919 (Version 1)
Quarter: 2016Q3

REPORT INFORMATION
  Report Type: Report from Study
  Country: US (occurrence: US)
  Receive Date: 20160921
  Receipt Date: 20160921
  Transmission Date: 20161109
  Serious: Yes (Hospitalization, Other)
  Sender: FDA-Public Use
  Company Number: PHHY2016US118072

PATIENT
  Age: 6 Year
  Sex: Female
  Weight: 19.7 kg

DRUGS (7)
  1. TOBI PODHALER [Suspect]
     Active Substance: TOBRAMYCIN
     Indication: CYSTIC FIBROSIS LUNG
     Dosage: UNK
     Route: 042
     Dates: start: 20160827, end: 20160905
  2. TOBI PODHALER [Suspect]
     Active Substance: TOBRAMYCIN
     Indication: PSEUDOMONAS INFECTION
  3. ALBUTEROL. [Concomitant]
     Active Substance: ALBUTEROL
     Indication: BRONCHIAL DISORDER
     Dosage: UNK UNK, QID
     Route: 055
     Dates: start: 20160908, end: 20160909
  4. CEFTAZ [Concomitant]
     Indication: FUNGAL INFECTION
     Route: 042
     Dates: start: 20160822, end: 20160905
  5. TOBI PODHALER [Suspect]
     Active Substance: TOBRAMYCIN
     Indication: FUNGAL INFECTION
  6. BACTRIM [Concomitant]
     Active Substance: SULFAMETHOXAZOLE\TRIMETHOPRIM
     Indication: FUNGAL INFECTION
     Dosage: UNK UNK, BID
     Route: 042
     Dates: start: 20160905, end: 20160909
  7. CLINDAMYCIN [Concomitant]
     Active Substance: CLINDAMYCIN\CLINDAMYCIN PHOSPHATE
     Indication: FUNGAL INFECTION
     Route: 042
     Dates: start: 20160902, end: 20160909

REACTIONS (2)
  - Infective pulmonary exacerbation of cystic fibrosis [Recovered/Resolved]
  - Bronchiectasis [Unknown]

NARRATIVE: CASE EVENT DATE: 20160822
